FAERS Safety Report 7000101-8 (Version None)
Quarter: 2010Q3

REPORT INFORMATION
  Report Type: 
  Country: None (occurrence: None)
  Receive Date: 20100920
  Receipt Date: 20070925
  Transmission Date: 20110219
  Serious: Yes (Other)
  Sender: FDA-Public Use
  Company Number: US-ASTRAZENECA-2007UW18646

PATIENT
  Age: 17753 Day
  Sex: Female
  Weight: 108.9 kg

DRUGS (19)
  1. SEROQUEL [Suspect]
     Indication: ANXIETY
     Dosage: 100 - 200 MG DAILY
     Route: 048
     Dates: start: 20011019
  2. SEROQUEL [Suspect]
     Indication: DEPRESSION
     Dosage: 100 - 200 MG DAILY
     Route: 048
     Dates: start: 20011019
  3. SEROQUEL [Suspect]
     Route: 048
     Dates: end: 20050530
  4. SEROQUEL [Suspect]
     Route: 048
     Dates: end: 20050530
  5. DILANTIN [Concomitant]
     Dosage: STRENGTH: 100 MG, DOSE: 400 MG - 600 MG DAILY
     Dates: start: 20011019
  6. EFFEXOR XR [Concomitant]
     Dates: start: 20040917
  7. GLUCOVANCE [Concomitant]
     Dosage: 2.5 MG/500 TWO TIMES A DAY
     Dates: start: 20011019
  8. NOVOLIN 70/30 [Concomitant]
     Dosage: 20 UNIT IN THE MORNING, 10 UNITS AT NIGHT
     Dates: start: 20040917
  9. GEODON [Concomitant]
     Dates: start: 20040917
  10. BEXTRA [Concomitant]
     Dates: start: 20040917
  11. AMBIEN [Concomitant]
     Dates: start: 20040917
  12. GLUCOPHAGE [Concomitant]
     Dates: start: 20020304
  13. WELLBUTRIN SR [Concomitant]
     Dates: start: 20040907
  14. ZOLOFT [Concomitant]
     Dates: start: 20040907
  15. ESTRADIOL [Concomitant]
     Dates: start: 20011019
  16. PREVACID [Concomitant]
     Dates: start: 20011019
  17. PROTONIX [Concomitant]
     Dates: start: 20021008
  18. PREMARIN [Concomitant]
     Dates: start: 20021009
  19. LASIX [Concomitant]
     Dates: start: 20020319

REACTIONS (1)
  - PANCREATITIS [None]
